FAERS Safety Report 13781656 (Version 1)
Quarter: 2017Q3

REPORT INFORMATION
  Report Type: Spontaneous
  Country: CA (occurrence: CA)
  Receive Date: 20170724
  Receipt Date: 20170724
  Transmission Date: 20171127
  Serious: Yes (Other)
  Sender: FDA-Public Use
  Company Number: CA-PFIZER INC-3021523

PATIENT
  Age: 42 Year
  Sex: Female

DRUGS (4)
  1. HYDROXYCHLOROQUINE PHOSPHATE [Concomitant]
     Active Substance: HYDROXYCHLOROQUINE DIPHOSPHATE
     Indication: RHEUMATOID ARTHRITIS
  2. XELJANZ [Suspect]
     Active Substance: TOFACITINIB CITRATE
     Indication: RHEUMATOID ARTHRITIS
     Dosage: 5 MG, FREQ: 2 DAY; INTERVAL: 1.
     Route: 048
     Dates: start: 20150420, end: 20150514
  3. XELJANZ [Suspect]
     Active Substance: TOFACITINIB CITRATE
     Dosage: 5 MG, FREQ: 1 DAY; INTERVAL: 1.
     Route: 048
  4. METHOTREXATE SODIUM. [Suspect]
     Active Substance: METHOTREXATE SODIUM
     Indication: RHEUMATOID ARTHRITIS
     Dosage: WEEKLY
     Route: 048

REACTIONS (9)
  - Insomnia [Not Recovered/Not Resolved]
  - Drug ineffective [Recovering/Resolving]
  - Secretion discharge [Recovering/Resolving]
  - Liver function test abnormal [Not Recovered/Not Resolved]
  - Musculoskeletal pain [Not Recovered/Not Resolved]
  - Hypersensitivity [Recovering/Resolving]
  - Cough [Not Recovered/Not Resolved]
  - Tremor [Not Recovered/Not Resolved]
  - Bronchitis [Recovering/Resolving]
